FAERS Safety Report 9039937 (Version 1)
Quarter: 2013Q1

REPORT INFORMATION
  Report Type: Spontaneous
  Country: US (occurrence: US)
  Receive Date: 20130130
  Receipt Date: 20130130
  Transmission Date: 20140127
  Serious: No
  Sender: FDA-Public Use
  Company Number: US-BIOGENIDEC-2013BI008551

PATIENT
  Sex: Female

DRUGS (1)
  1. TYSABRI [Suspect]
     Indication: MULTIPLE SCLEROSIS
     Route: 042
     Dates: start: 20110414

REACTIONS (9)
  - Poor venous access [Not Recovered/Not Resolved]
  - Clostridium difficile infection [Recovered/Resolved]
  - Sciatic nerve neuropathy [Unknown]
  - Stress [Unknown]
  - Diarrhoea [Recovered/Resolved]
  - Dehydration [Recovered/Resolved]
  - Lumbar puncture [Recovered/Resolved]
  - Sinusitis [Unknown]
  - Pyrexia [Recovered/Resolved]
